FAERS Safety Report 7985753-8 (Version None)
Quarter: 2011Q4

REPORT INFORMATION
  Report Type: 
  Country: None (occurrence: None)
  Receive Date: 20111216
  Receipt Date: 20110405
  Transmission Date: 20120403
  Serious: Yes (Life-Threatening, Hospitalization, Other)
  Sender: FDA-Public Use
  Company Number: US-VIIV HEALTHCARE LIMITED-A0921670A

PATIENT
  Age: 59 Year
  Sex: Male

DRUGS (3)
  1. SELZENTRY [Concomitant]
  2. ISENTRESS [Concomitant]
  3. LEXIVA [Suspect]
     Indication: HIV INFECTION
     Dosage: 700MG TWICE PER DAY
     Route: 048
     Dates: start: 20110202, end: 20110404

REACTIONS (1)
  - DIABETIC KETOACIDOSIS [None]
